FAERS Safety Report 11305279 (Version 1)
Quarter: 2015Q3

REPORT INFORMATION
  Report Type: Spontaneous
  Country: US (occurrence: US)
  Receive Date: 20150723
  Receipt Date: 20150723
  Transmission Date: 20151125
  Serious: No
  Sender: FDA-Public Use
  Company Number: US-JNJFOC-20150118019

PATIENT
  Age: 72 Year
  Sex: Male
  Weight: 113.4 kg

DRUGS (2)
  1. ZYRTEC [Suspect]
     Active Substance: CETIRIZINE HYDROCHLORIDE
     Route: 048
  2. ZYRTEC [Suspect]
     Active Substance: CETIRIZINE HYDROCHLORIDE
     Indication: RASH
     Dosage: 1 TABLET
     Route: 048
     Dates: start: 20150122

REACTIONS (3)
  - Inappropriate schedule of drug administration [Unknown]
  - Drug prescribing error [Unknown]
  - Product use issue [Unknown]

NARRATIVE: CASE EVENT DATE: 20150122
